FAERS Safety Report 8303959 (Version 12)
Quarter: 2014Q1

REPORT INFORMATION
  Report Type: Report from Study
  Country: JP (occurrence: JP)
  Receive Date: 20111221
  Receipt Date: 20140319
  Transmission Date: 20141002
  Serious: Yes (Hospitalization, Other)
  Sender: FDA-Public Use
  Company Number: JP-JNJFOC-20111207420

PATIENT
  Age: 41 Year
  Sex: Male
  Weight: 57 kg

DRUGS (10)
  1. STELARA [Suspect]
     Indication: PSORIASIS
     Route: 058
     Dates: start: 20111202
  2. ISCOTIN [Suspect]
     Indication: PROPHYLAXIS
     Dates: start: 20111213, end: 20111218
  3. ISCOTIN [Suspect]
     Indication: PROPHYLAXIS
     Dates: start: 20111110, end: 20111201
  4. OXAROL [Concomitant]
     Indication: PSORIASIS
     Route: 061
     Dates: end: 20111209
  5. ANTEBATE [Concomitant]
     Indication: PSORIASIS
     Route: 061
  6. EPINASTINE HYDROCHLORIDE [Concomitant]
     Indication: PSORIASIS
     Route: 048
  7. PYDOXAL [Concomitant]
     Indication: PROPHYLAXIS
     Route: 048
     Dates: start: 20111203, end: 20111219
  8. ALLELOCK [Concomitant]
     Indication: PSORIASIS
     Dates: start: 20111213, end: 20111219
  9. DOVONEX [Concomitant]
     Indication: PSORIASIS
     Route: 061
     Dates: start: 20111213
  10. CALONAL [Concomitant]
     Dates: start: 20111213

REACTIONS (3)
  - Dermatitis exfoliative [Recovered/Resolved]
  - Hepatic function abnormal [Recovered/Resolved]
  - Cough [Recovered/Resolved]
